FAERS Safety Report 4650469-2 (Version None)
Quarter: 2005Q2

REPORT INFORMATION
  Report Type: 
  Country: None (occurrence: None)
  Receive Date: 20050429
  Receipt Date: 20050415
  Transmission Date: 20051028
  Serious: Yes (Hospitalization)
  Sender: FDA-Public Use
  Company Number: 8010147

PATIENT
  Age: 36 Year
  Sex: Female
  Weight: 46 kg

DRUGS (3)
  1. KEPPRA [Suspect]
     Indication: EPILEPSY
     Dosage: 500 MG 2/D PO
     Route: 048
     Dates: start: 20050302, end: 20050306
  2. GABITRIL [Suspect]
     Indication: EPILEPSY
     Dosage: 75 MG 2/D PO
     Route: 048
     Dates: start: 20040201, end: 20050306
  3. GABITRIL [Suspect]
     Indication: EPILEPSY
     Dosage: PO
     Route: 048
     Dates: start: 20050306

REACTIONS (12)
  - AMNESTIC DISORDER [None]
  - BLOOD PRESSURE DIASTOLIC DECREASED [None]
  - BODY TEMPERATURE INCREASED [None]
  - CONDITION AGGRAVATED [None]
  - EPILEPSY [None]
  - FACE OEDEMA [None]
  - GRAND MAL CONVULSION [None]
  - HALLUCINATION [None]
  - PRURITUS [None]
  - RASH ERYTHEMATOUS [None]
  - RASH PAPULAR [None]
  - SKIN LESION [None]
